FAERS Safety Report 5535542-9 (Version None)
Quarter: 2007Q4

REPORT INFORMATION
  Report Type: 
  Country: None (occurrence: None)
  Receive Date: 20071203
  Receipt Date: 20071203
  Transmission Date: 20080405
  Serious: Yes (Hospitalization)
  Sender: FDA-Public Use
  Company Number: None

PATIENT
  Age: 63 Year
  Sex: Male
  Weight: 75.2 kg

DRUGS (1)
  1. MEMANTINE HCL [Suspect]
     Dosage: 10MG BID PO
     Route: 048
     Dates: start: 20061113, end: 20071010

REACTIONS (2)
  - HEPATIC ENZYME INCREASED [None]
  - STAPHYLOCOCCAL INFECTION [None]
